FAERS Safety Report 9360426 (Version 1)
Quarter: 2013Q2

REPORT INFORMATION
  Report Type: Spontaneous
  Country: RO (occurrence: RO)
  Receive Date: 20130621
  Receipt Date: 20130621
  Transmission Date: 20140414
  Serious: Yes (Hospitalization)
  Sender: FDA-Public Use
  Company Number: RO-ASTRAZENECA-2013SE47017

PATIENT
  Age: 68 Year
  Sex: Male

DRUGS (1)
  1. SYMBICORT TURBUHALER [Suspect]
     Indication: CHRONIC OBSTRUCTIVE PULMONARY DISEASE
     Dosage: 320/9 MCG 1 PUFF IN EVERY 12 HOURS
     Route: 055
     Dates: start: 201107

REACTIONS (4)
  - Dyspnoea [Recovered/Resolved]
  - Moraxella infection [Recovered/Resolved]
  - Pneumococcal infection [Recovered/Resolved]
  - Intentional drug misuse [Unknown]
